FAERS Safety Report 13717472 (Version 1)
Quarter: 2017Q3

REPORT INFORMATION
  Report Type: Spontaneous
  Country: DE (occurrence: DE)
  Receive Date: 20170705
  Receipt Date: 20170705
  Transmission Date: 20171127
  Serious: Yes (Other)
  Sender: FDA-Public Use
  Company Number: PHHY2017DE096347

PATIENT
  Sex: Male

DRUGS (1)
  1. REVOLADE [Suspect]
     Active Substance: ELTROMBOPAG
     Indication: THROMBOCYTOPENIA
     Dosage: 75 MG, UNK
     Route: 065
     Dates: start: 2014, end: 2014

REACTIONS (5)
  - Haemorrhage [Unknown]
  - Eye colour change [Unknown]
  - Loss of consciousness [Unknown]
  - Drug ineffective [Unknown]
  - Haematemesis [Unknown]

NARRATIVE: CASE EVENT DATE: 2014
